FAERS Safety Report 6125890-6 (Version None)
Quarter: 2009Q1

REPORT INFORMATION
  Report Type: 
  Country: None (occurrence: None)
  Receive Date: 20090320
  Receipt Date: 20090318
  Transmission Date: 20090719
  Serious: Yes (Hospitalization, Other)
  Sender: FDA-Public Use
  Company Number: MX-ABBOTT-09P-107-0562954-00

PATIENT
  Sex: Male
  Weight: 91.2 kg

DRUGS (7)
  1. ZEMPLAR [Suspect]
     Indication: DRUG USE FOR UNKNOWN INDICATION
     Route: 042
     Dates: start: 20080829, end: 20081010
  2. ZEMPLAR [Suspect]
     Route: 042
     Dates: start: 20081015
  3. RANITIDINE [Concomitant]
     Indication: GASTRITIS
     Dates: start: 20080904
  4. EPOETIN [Concomitant]
     Indication: ANAEMIA
     Dates: start: 20030101
  5. SEVELAMER [Concomitant]
     Indication: HYPERPHOSPHATAEMIA
     Dates: start: 20080904
  6. SERTRALINE [Concomitant]
     Indication: DEPRESSION
     Dates: start: 20080829
  7. SERTRALINE [Concomitant]
     Indication: ANXIETY

REACTIONS (3)
  - CATHETER PLACEMENT [None]
  - CATHETER RELATED COMPLICATION [None]
  - VENOUS STENOSIS [None]
